FAERS Safety Report 6000341-0 (Version None)
Quarter: 2008Q4

REPORT INFORMATION
  Report Type: 
  Country: None (occurrence: None)
  Receive Date: 20081215
  Receipt Date: 20081103
  Transmission Date: 20090506
  Serious: No
  Sender: FDA-Public Use
  Company Number: US-BAYER-200814285BCC

PATIENT
  Age: 69 Year
  Sex: Female

DRUGS (4)
  1. ALEVE [Suspect]
     Indication: DRUG USE FOR UNKNOWN INDICATION
  2. IBUPROFEN [Concomitant]
  3. ASPIRIN [Concomitant]
  4. SERTRALINE HYDROCHLORIDE [Concomitant]
     Indication: DEPRESSION
     Dosage: TOTAL DAILY DOSE: 50  MG  UNIT DOSE: 50 MG
     Dates: start: 19930101

REACTIONS (1)
  - ABDOMINAL DISCOMFORT [None]
